FAERS Safety Report 21144213 (Version 2)
Quarter: 2022Q3

REPORT INFORMATION
  Report Type: Spontaneous
  Country: US (occurrence: US)
  Receive Date: 20220728
  Receipt Date: 20220908
  Transmission Date: 20221027
  Serious: Yes (Other)
  Sender: FDA-Public Use
  Company Number: US-PFIZER INC-202201008346

PATIENT
  Age: 60 Year
  Sex: Female

DRUGS (2)
  1. IBRANCE [Suspect]
     Active Substance: PALBOCICLIB
     Dosage: 100 MG, CYCLIC (TAKE 1 TAB DAILY X 21 DAYS THEN 7 DAYS OFF)
     Dates: start: 20220613
  2. IBRANCE [Suspect]
     Active Substance: PALBOCICLIB
     Dosage: 75MG FOR 14 DAYS ON AND SEVEN DAYS OFF

REACTIONS (3)
  - Anaemia [Unknown]
  - Full blood count abnormal [Unknown]
  - Off label use [Unknown]

NARRATIVE: CASE EVENT DATE: 20220101
